FAERS Safety Report 19841247 (Version 8)
Quarter: 2022Q3

REPORT INFORMATION
  Report Type: Report from Study
  Country: JP (occurrence: JP)
  Receive Date: 20210916
  Receipt Date: 20220804
  Transmission Date: 20221027
  Serious: Yes (Hospitalization, Other)
  Sender: FDA-Public Use
  Company Number: JP-BIOGEN-2020BI00924691

PATIENT
  Age: 24 Year
  Sex: Male
  Weight: 42 kg

DRUGS (2)
  1. SPINRAZA [Suspect]
     Active Substance: NUSINERSEN
     Indication: Spinal muscular atrophy
     Route: 050
     Dates: start: 20181121
  2. SPINRAZA [Suspect]
     Active Substance: NUSINERSEN
     Route: 050
     Dates: start: 20200513, end: 20200909

REACTIONS (2)
  - CSF protein increased [Recovered/Resolved with Sequelae]
  - Arachnoiditis [Unknown]

NARRATIVE: CASE EVENT DATE: 20181121
